FAERS Safety Report 9539099 (Version 1)
Quarter: 2013Q3

REPORT INFORMATION
  Report Type: Spontaneous
  Country: US (occurrence: US)
  Receive Date: 20130920
  Receipt Date: 20130920
  Transmission Date: 20140515
  Serious: Yes (Hospitalization)
  Sender: FDA-Public Use
  Company Number: US-BAYER-2013-113773

PATIENT
  Age: 24 Year
  Sex: Female

DRUGS (5)
  1. YAZ [Suspect]
  2. NEXIUM [Concomitant]
     Dosage: 40 MG, UNK
  3. NEXIUM [Concomitant]
  4. PREVACID [Concomitant]
  5. NAPROXEN [Concomitant]

REACTIONS (1)
  - Pulmonary embolism [None]
